FAERS Safety Report 5691674-6 (Version None)
Quarter: 2008Q2

REPORT INFORMATION
  Report Type: 
  Country: None (occurrence: None)
  Receive Date: 20080402
  Receipt Date: 20080326
  Transmission Date: 20081010
  Serious: Yes (Other)
  Sender: FDA-Public Use
  Company Number: IL-TEVA-169316ISR

PATIENT
  Age: 90 Year
  Sex: Female

DRUGS (4)
  1. METRONIDAZOLE HCL [Suspect]
     Indication: PNEUMONIA ASPIRATION
  2. CEFTRIAXONE [Concomitant]
     Indication: PNEUMONIA ASPIRATION
  3. CALCIUM [Concomitant]
  4. LEVODOPA [Concomitant]

REACTIONS (1)
  - ELECTROCARDIOGRAM QT PROLONGED [None]
